FAERS Safety Report 6095110-X (Version None)
Quarter: 2009Q1

REPORT INFORMATION
  Report Type: 
  Country: None (occurrence: None)
  Receive Date: 20090227
  Receipt Date: 20080121
  Transmission Date: 20090719
  Serious: No
  Sender: FDA-Public Use
  Company Number: A0704378A

PATIENT
  Age: 76 Year
  Sex: Female

DRUGS (5)
  1. LAMICTAL [Suspect]
     Indication: DEPRESSION
     Dosage: 125MG PER DAY
     Route: 048
     Dates: start: 20070701, end: 20071026
  2. LYRICA [Concomitant]
  3. UROGESIC BLUE [Concomitant]
  4. NASAL SPRAY [Concomitant]
  5. CLONAZEPAM [Concomitant]

REACTIONS (3)
  - MOUTH ULCERATION [None]
  - RASH [None]
  - URGE INCONTINENCE [None]
